FAERS Safety Report 4603638-1 (Version None)
Quarter: 2005Q1

REPORT INFORMATION
  Report Type: 
  Country: None (occurrence: None)
  Receive Date: 20050308
  Receipt Date: 20050221
  Transmission Date: 20050727
  Serious: Yes (Life-Threatening, Hospitalization, Other)
  Sender: FDA-Public Use
  Company Number: CIP05000312

PATIENT
  Age: 39 Year
  Sex: Male

DRUGS (8)
  1. DANTRIUM [Suspect]
     Indication: NEUROLEPTIC MALIGNANT SYNDROME
     Dosage: 100 MG DAILY, IV DRIP
     Route: 041
     Dates: start: 20050201, end: 20050202
  2. MIDAZOLAM HCL [Concomitant]
  3. PANSPORIN              (CEFOTIAM HYDROCHLORIDE) [Concomitant]
  4. ZANTAC [Concomitant]
  5. FUTHAN (NAFAMOSTAT MESILATE) [Concomitant]
  6. GLUCOSE (GLUCOSE) [Concomitant]
  7. KIDMIN (AMINO ACIDS NOS) [Concomitant]
  8. MULTAMIN (VITAMINS NOS) [Concomitant]

REACTIONS (12)
  - ASPARTATE AMINOTRANSFERASE INCREASED [None]
  - BLOOD ALKALINE PHOSPHATASE INCREASED [None]
  - BLOOD CREATININE INCREASED [None]
  - BLOOD LACTATE DEHYDROGENASE INCREASED [None]
  - CONDITION AGGRAVATED [None]
  - EOSINOPHIL PERCENTAGE INCREASED [None]
  - GAMMA-GLUTAMYLTRANSFERASE INCREASED [None]
  - HAEMATOCRIT DECREASED [None]
  - HAEMOGLOBIN DECREASED [None]
  - PLEURAL EFFUSION [None]
  - RED BLOOD CELL COUNT DECREASED [None]
  - RESPIRATORY FAILURE [None]
